FAERS Safety Report 6062147-6 (Version None)
Quarter: 2009Q1

REPORT INFORMATION
  Report Type: 
  Country: None (occurrence: None)
  Receive Date: 20090130
  Receipt Date: 20090130
  Transmission Date: 20090719
  Serious: Yes (Death)
  Sender: FDA-Public Use
  Company Number: None

PATIENT
  Age: 74 Year
  Sex: Male
  Weight: 71 kg

DRUGS (17)
  1. ARIXTRA [Suspect]
     Indication: ATRIAL FIBRILLATION
     Dosage: 7.5 MG DAILY SQ
     Route: 058
     Dates: start: 20090118, end: 20090124
  2. ARIXTRA [Suspect]
     Indication: CEREBROVASCULAR ACCIDENT
     Dosage: 7.5 MG DAILY SQ
     Route: 058
     Dates: start: 20090118, end: 20090124
  3. DOPAMINE HCL [Concomitant]
  4. DARBEPOETIN [Concomitant]
  5. PANTOPRAZOLE [Concomitant]
  6. DIGOXIN [Concomitant]
  7. DOCUSATE [Concomitant]
  8. FERROUS SULFATE TAB [Concomitant]
  9. FOLIC ACID [Concomitant]
  10. FUROSEMIDE [Concomitant]
  11. GLIPIZIDE [Concomitant]
  12. INSULIN [Concomitant]
  13. MORPHINE [Concomitant]
  14. MIRALAX [Concomitant]
  15. SIMVASTATIN [Concomitant]
  16. TAMSULOSIN HCL [Concomitant]
  17. ZOLPIDEM [Concomitant]

REACTIONS (21)
  - AORTIC STENOSIS [None]
  - ASCITES [None]
  - ATRIAL FIBRILLATION [None]
  - BENIGN PROSTATIC HYPERPLASIA [None]
  - BLOOD ALKALINE PHOSPHATASE INCREASED [None]
  - CORONARY ARTERY DISEASE [None]
  - GASTRITIS [None]
  - GOUT [None]
  - HEPATIC CONGESTION [None]
  - HYPERKALAEMIA [None]
  - HYPERLIPIDAEMIA [None]
  - HYPONATRAEMIA [None]
  - HYPOTENSION [None]
  - MITRAL VALVE INCOMPETENCE [None]
  - PANCYTOPENIA [None]
  - PERIPHERAL VASCULAR DISORDER [None]
  - PULMONARY HYPERTENSION [None]
  - RENAL FAILURE ACUTE [None]
  - RETROPERITONEAL HAEMORRHAGE [None]
  - THROMBOCYTOPENIA [None]
  - TYPE 2 DIABETES MELLITUS [None]
